FAERS Safety Report 23804663 (Version 2)
Quarter: 2024Q2

REPORT INFORMATION
  Report Type: Report from Study
  Country: US (occurrence: US)
  Receive Date: 20240501
  Receipt Date: 20240513
  Transmission Date: 20240715
  Serious: Yes (Other)
  Sender: FDA-Public Use
  Company Number: US-PFIZER INC-PV202400055334

PATIENT
  Age: 42 Year
  Sex: Female
  Weight: 60.1 kg

DRUGS (15)
  1. TRASTUZUMAB [Suspect]
     Active Substance: TRASTUZUMAB
     Indication: Breast cancer metastatic
     Dosage: 6 MG/KG INTRAVENOUSLY ONCE EVERY 21 DAYS
     Route: 042
     Dates: start: 20220929
  2. INVESTIGATIONAL PRODUCT [Suspect]
     Active Substance: INVESTIGATIONAL PRODUCT
     Indication: Breast cancer metastatic
     Dosage: TUCATINIB/PLACEBO, 2X/DAY (BID) EVERY 21 DAYS
     Route: 048
     Dates: start: 20220929
  3. PERTUZUMAB [Suspect]
     Active Substance: PERTUZUMAB
     Indication: Breast cancer metastatic
     Dosage: 420 MG, EVERY 21 DAYS
     Route: 042
     Dates: start: 20220929
  4. ATROVENT [Concomitant]
     Active Substance: IPRATROPIUM BROMIDE
     Indication: Rhinitis
     Dosage: 21 MCG (0.03%), 2 SPRAYS, 2X/DAY, NOSE
     Route: 045
     Dates: start: 20231103
  5. BACTROBAN [Concomitant]
     Active Substance: MUPIROCIN CALCIUM
     Indication: Rhinitis
     Dosage: 2 %, 2X/DAY
     Route: 061
     Dates: start: 20230922
  6. COMPAZINE [Concomitant]
     Active Substance: PROCHLORPERAZINE MALEATE
     Indication: Nausea
     Dosage: 5 MG, AS NEEDED
     Route: 048
     Dates: start: 20220426, end: 20240423
  7. CEQUA [Concomitant]
     Active Substance: CYCLOSPORINE
     Indication: Dry eye
     Dosage: 0.09 %, AS NEEDED, EYE
     Route: 047
     Dates: start: 20230825
  8. IMODIUM [Concomitant]
     Active Substance: LOPERAMIDE HYDROCHLORIDE
     Indication: Diarrhoea
     Dosage: 5 MG, AS NEEDED
     Route: 048
     Dates: start: 20220426
  9. ELIQUIS [Concomitant]
     Active Substance: APIXABAN
     Indication: Anticoagulant therapy
     Dosage: 5 MG, 2X/DAY
     Route: 048
     Dates: start: 20240422
  10. K TAB [Concomitant]
     Indication: Hypokalaemia
     Dosage: 20 MEQ, 2X/DAY
     Route: 048
     Dates: start: 20231128, end: 20240423
  11. LOPERAMIDE HYDROCHLORIDE [Concomitant]
     Active Substance: LOPERAMIDE HYDROCHLORIDE
     Indication: Diarrhoea
     Dosage: 2.5 MG, AS NEEDED
     Route: 048
     Dates: start: 20230315
  12. PULMICORT TURBUHALER [Concomitant]
     Active Substance: BUDESONIDE
     Indication: Rhinitis
     Dosage: 0.5 MG/32ML, NEBULIZER SOLUTION, 1 AMPULE, 2X/DAY, NOSE
     Route: 045
     Dates: start: 20230922
  13. VALACYCLOVIR [Concomitant]
     Active Substance: VALACYCLOVIR HYDROCHLORIDE
     Indication: Herpes simplex
     Dosage: 500 MG, 1X/DAY
     Route: 048
     Dates: start: 20240205
  14. XGEVA [Concomitant]
     Active Substance: DENOSUMAB
     Indication: Prophylaxis
     Dosage: 120 MG, EVERY 4 WEEKS
     Dates: start: 20220505
  15. ZOFRAN [Concomitant]
     Active Substance: ONDANSETRON HYDROCHLORIDE
     Indication: Nausea
     Dosage: 8 MG, AS NEEDED
     Route: 048
     Dates: start: 20220426

REACTIONS (1)
  - Pulmonary embolism [Recovering/Resolving]

NARRATIVE: CASE EVENT DATE: 20240423
